FAERS Safety Report 5125274-3 (Version None)
Quarter: 2006Q4

REPORT INFORMATION
  Report Type: 
  Country: None (occurrence: None)
  Receive Date: 20061006
  Receipt Date: 20061002
  Transmission Date: 20070319
  Serious: Yes (Other)
  Sender: FDA-Public Use
  Company Number: 2006117861

PATIENT

DRUGS (1)
  1. DRAMAMINE [Suspect]
     Dosage: 12 PILLS, ORAL
     Route: 048

REACTIONS (2)
  - HALLUCINATION [None]
  - INCORRECT DOSE ADMINISTERED [None]
